FAERS Safety Report 25972970 (Version 1)
Quarter: 2025Q4

REPORT INFORMATION
  Report Type: Report from Study
  Country: US (occurrence: US)
  Receive Date: 20251029
  Receipt Date: 20251029
  Transmission Date: 20260118
  Serious: Yes (Other)
  Sender: CSL BEHRING
  Company Number: US-BEH-2025222500

PATIENT
  Sex: Male

DRUGS (1)
  1. HIZENTRA [Suspect]
     Active Substance: HUMAN IMMUNOGLOBULIN G
     Dosage: 8 G, QW
     Route: 058

REACTIONS (6)
  - Haemolytic anaemia [Unknown]
  - Musculoskeletal chest pain [Unknown]
  - Abdominal pain upper [Unknown]
  - Chromaturia [Unknown]
  - Eye colour change [Unknown]
  - Yellow skin [Unknown]
